FAERS Safety Report 23057381 (Version 1)
Quarter: 2023Q4

REPORT INFORMATION
  Report Type: Spontaneous
  Country: US (occurrence: US)
  Receive Date: 20231012
  Receipt Date: 20231012
  Transmission Date: 20240110
  Serious: Yes (Disabling)
  Sender: FDA-Public Use
  Company Number: US-AMGEN-USASP2023175722

PATIENT

DRUGS (1)
  1. PROLIA [Suspect]
     Active Substance: DENOSUMAB
     Indication: Osteoporosis
     Dosage: UNK
     Route: 065

REACTIONS (11)
  - Muscular weakness [Unknown]
  - Pain in extremity [Unknown]
  - Arthralgia [Unknown]
  - Oropharyngeal discomfort [Unknown]
  - Musculoskeletal stiffness [Unknown]
  - Sciatica [Unknown]
  - Muscle twitching [Unknown]
  - Muscle spasms [Unknown]
  - Nausea [Unknown]
  - Cough [Unknown]
  - Asthenia [Unknown]
